FAERS Safety Report 4456422-6 (Version None)
Quarter: 2004Q3

REPORT INFORMATION
  Report Type: 
  Country: None (occurrence: None)
  Receive Date: 20040830
  Receipt Date: 20040601
  Transmission Date: 20050211
  Serious: No
  Sender: FDA-Public Use
  Company Number: 207172

PATIENT
  Age: 25 Year
  Sex: Female
  Weight: 61.7 kg

DRUGS (7)
  1. XOLAIR [Suspect]
     Indication: ASTHMA
     Dosage: 150 MG, Q4W, SUBCUTANEOUS
     Route: 058
     Dates: start: 20031017
  2. XOLAIR [Suspect]
     Dosage: 150 MG, Q4W
     Dates: start: 20031017, end: 20040517
  3. MEDROL [Concomitant]
  4. PULMICORT [Concomitant]
  5. ADVAIR DISKUS (FLUTICASONE PROPIONATE, SALMETEROL XINAFOATE) [Concomitant]
  6. MAXAIR [Concomitant]
  7. STEROIDS NOS (STEROID NOS) [Concomitant]

REACTIONS (1)
  - CONTUSION [None]
